FAERS Safety Report 16233549 (Version 1)
Quarter: 2019Q2

REPORT INFORMATION
  Report Type: Spontaneous
  Country: US (occurrence: US)
  Receive Date: 20190423
  Receipt Date: 20190423
  Transmission Date: 20190711
  Serious: Yes (Other)
  Sender: FDA-Public Use
  Company Number: None

PATIENT
  Age: 60 Year
  Sex: Male
  Weight: 112.5 kg

DRUGS (1)
  1. BUPRENORPHINE/NALOXONE FILM [Suspect]
     Active Substance: BUPRENORPHINE\NALOXONE
     Indication: DRUG DEPENDENCE
     Dosage: ?          OTHER STRENGTH:1;QUANTITY:1 1;?
     Route: 060
     Dates: start: 20190204, end: 20190219

REACTIONS (6)
  - Therapeutic product effect incomplete [None]
  - Malaise [None]
  - Withdrawal syndrome [None]
  - Muscle spasms [None]
  - Product quality issue [None]
  - Product substitution issue [None]

NARRATIVE: CASE EVENT DATE: 20190204
